FAERS Safety Report 10447680 (Version 1)
Quarter: 2014Q3

REPORT INFORMATION
  Report Type: Spontaneous
  Country: US (occurrence: None)
  Receive Date: 20140910
  Receipt Date: 20140910
  Transmission Date: 20150326
  Serious: Yes (Hospitalization)
  Sender: FDA-Public Use
  Company Number: None

PATIENT
  Age: 54 Year
  Sex: Female
  Weight: 52.3 kg

DRUGS (16)
  1. BACITRACIN. [Concomitant]
     Active Substance: BACITRACIN
  2. MORPHINE [Concomitant]
     Active Substance: MORPHINE
  3. OFLOXACIN. [Concomitant]
     Active Substance: OFLOXACIN
  4. CETUXIMAB [Suspect]
     Active Substance: CETUXIMAB
     Indication: METASTASIS
     Dates: start: 20140903, end: 20140908
  5. ONDANSETRON [Concomitant]
     Active Substance: ONDANSETRON
  6. PAZOPANIB [Suspect]
     Active Substance: PAZOPANIB
     Indication: SQUAMOUS CELL CARCINOMA OF HEAD AND NECK
     Dates: start: 20140903, end: 20140908
  7. FENTANYL. [Concomitant]
     Active Substance: FENTANYL
  8. BENZONATATE. [Concomitant]
     Active Substance: BENZONATATE
  9. CETUXIMAB [Suspect]
     Active Substance: CETUXIMAB
     Indication: SQUAMOUS CELL CARCINOMA OF HEAD AND NECK
     Dates: start: 20140903, end: 20140908
  10. FLUOXETINE [Concomitant]
     Active Substance: FLUOXETINE\FLUOXETINE HYDROCHLORIDE
  11. FLUNISOLIDE. [Concomitant]
     Active Substance: FLUNISOLIDE
  12. GABAPENTIN. [Concomitant]
     Active Substance: GABAPENTIN
  13. PROCHLORPERAZINE. [Concomitant]
     Active Substance: PROCHLORPERAZINE
  14. TRIAMCINOLONE [Concomitant]
     Active Substance: TRIAMCINOLONE
  15. PAZOPANIB [Suspect]
     Active Substance: PAZOPANIB
     Indication: METASTASIS
     Dates: start: 20140903, end: 20140908
  16. POLYETHYLENE [Concomitant]
     Active Substance: HIGH DENSITY POLYETHYLENE

REACTIONS (1)
  - Pain [None]

NARRATIVE: CASE EVENT DATE: 20140908
